FAERS Safety Report 4900695-X (Version None)
Quarter: 2006Q1

REPORT INFORMATION
  Report Type: 
  Country: None (occurrence: None)
  Receive Date: 20060201
  Receipt Date: 20060120
  Transmission Date: 20060701
  Serious: Yes (Hospitalization)
  Sender: FDA-Public Use
  Company Number: 7677

PATIENT
  Age: 64 Year
  Sex: Female

DRUGS (17)
  1. METHOTREXATE [Suspect]
     Indication: RHEUMATOID ARTHRITIS
     Dosage: 25 MG WEEKLY SC
     Route: 058
     Dates: start: 20020218, end: 20040212
  2. ENBREL [Suspect]
     Indication: RHEUMATOID ARTHRITIS
     Dosage: 25 MG 2/WK SC
     Route: 058
     Dates: start: 20021017, end: 20040212
  3. PLAQUENIL [Concomitant]
  4. PRILOSEC [Concomitant]
  5. NEURONTIN [Concomitant]
  6. PREDNISONE [Concomitant]
  7. ZOLOFT [Concomitant]
  8. FOLIC ACID [Concomitant]
  9. VITAMIN C WITH ROSE HIPS [Concomitant]
  10. OS-CAL [Concomitant]
  11. CENTRUM SILVER [Concomitant]
  12. BIOTIN [Concomitant]
  13. GLUCOSAMINE [Concomitant]
  14. HORSE CHESTNUT [Concomitant]
  15. BELLERGAL [Concomitant]
  16. LEUCOVORIN [Concomitant]
  17. VIOXX [Concomitant]

REACTIONS (10)
  - ADRENAL INSUFFICIENCY [None]
  - BLOOD ALKALINE PHOSPHATASE INCREASED [None]
  - BLOOD SODIUM INCREASED [None]
  - CARBON DIOXIDE DECREASED [None]
  - DISEASE RECURRENCE [None]
  - ESCHERICHIA SEPSIS [None]
  - ESCHERICHIA URINARY TRACT INFECTION [None]
  - HAEMATOCRIT DECREASED [None]
  - HYPOTENSION [None]
  - MULTIPLE FRACTURES [None]
